FAERS Safety Report 6898585 (Version 2)
Quarter: 2020Q3

REPORT INFORMATION
  Report Type: Report from Study
  Country: DE (occurrence: DE)
  Receive Date: 20090202
  Receipt Date: 20090216
  Transmission Date: 20201105
  Serious: Yes (Hospitalization)
  Sender: FDA-Public Use
  Company Number: DE-ROCHE-609638

PATIENT
  Age: 75 Year
  Sex: Female
  Weight: 33 kg

DRUGS (1)
  1. IBANDRONIC ACID. [Suspect]
     Active Substance: IBANDRONIC ACID
     Indication: PLASMA CELL MYELOMA
     Dosage: FREQUENCY REPORTED AS ^ONCE^. IBANDRONIC ACID GIVEN OVER 15 MIN EVERY 4 WEEKS (GIVEN IN PROTOCOL).
     Route: 042

REACTIONS (3)
  - Pancytopenia [Unknown]
  - Plasmacytoma [Unknown]
  - Enterocolitis [Unknown]

NARRATIVE: CASE EVENT DATE: 20081208
